FAERS Safety Report 25989272 (Version 2)
Quarter: 2025Q4

REPORT INFORMATION
  Report Type: Spontaneous
  Country: US (occurrence: US)
  Receive Date: 20251103
  Receipt Date: 20251117
  Transmission Date: 20260117
  Serious: Yes (Other)
  Sender: TEVA
  Company Number: US-TEVA-VS-3387273

PATIENT
  Age: 5 Year
  Sex: Female

DRUGS (3)
  1. CLOBETASOL [Suspect]
     Active Substance: CLOBETASOL
     Indication: Alopecia universalis
     Route: 061
  2. BETAMETHASONE [Suspect]
     Active Substance: BETAMETHASONE
     Indication: Alopecia universalis
     Route: 065
  3. DUPILUMAB [Suspect]
     Active Substance: DUPILUMAB
     Indication: Alopecia universalis
     Route: 065

REACTIONS (2)
  - Drug ineffective [Unknown]
  - Rebound effect [Unknown]
